FAERS Safety Report 7812470-7 (Version None)
Quarter: 2011Q4

REPORT INFORMATION
  Report Type: 
  Country: None (occurrence: None)
  Receive Date: 20111013
  Receipt Date: 20111006
  Transmission Date: 20120403
  Serious: Yes (Hospitalization)
  Sender: FDA-Public Use
  Company Number: JP-MERCK-1110USA01306

PATIENT
  Age: 84 Year
  Sex: Male

DRUGS (12)
  1. ASPIRIN [Concomitant]
     Route: 065
  2. NATEGLINIDE [Concomitant]
     Route: 065
  3. BASEN OD [Concomitant]
     Route: 065
  4. SIGMART [Concomitant]
     Route: 065
  5. ALDACTONE [Concomitant]
     Route: 065
  6. LASIX [Concomitant]
     Route: 065
  7. LANSOPRAZOLE [Concomitant]
     Route: 065
  8. TRANDOLAPRIL [Concomitant]
     Route: 065
  9. ANPLAG [Concomitant]
     Route: 065
  10. ZOLPIDEM [Concomitant]
     Route: 065
  11. JANUVIA [Suspect]
     Indication: TYPE 2 DIABETES MELLITUS
     Route: 048
     Dates: start: 20110510, end: 20110812
  12. METOPROLOL TARTRATE [Concomitant]
     Route: 065

REACTIONS (1)
  - INTERSTITIAL LUNG DISEASE [None]
